FAERS Safety Report 8561780 (Version 2)
Quarter: 2012Q4

REPORT INFORMATION
  Report Type: 
  Country: US (occurrence: US)
  Receive Date: 20120515
  Receipt Date: 20121008
  Transmission Date: 20130627
  Serious: Yes (Other)
  Sender: FDA-Public Use
  Company Number: US-PFIZER INC-2012115822

PATIENT
  Age: 88 Year
  Sex: Female
  Weight: 45 kg

DRUGS (2)
  1. NORVASC [Suspect]
     Indication: HYPERTENSION
     Dosage: 5 mg, 1x/day
     Route: 048
     Dates: start: 201103
  2. PRAVASTATIN [Concomitant]
     Indication: BLOOD CHOLESTEROL INCREASED
     Dosage: UNK

REACTIONS (1)
  - Visual impairment [Not Recovered/Not Resolved]
